FAERS Safety Report 9733456 (Version 1)
Quarter: 2013Q4

REPORT INFORMATION
  Report Type: Spontaneous
  Country: US (occurrence: US)
  Receive Date: 20131205
  Receipt Date: 20131205
  Transmission Date: 20140711
  Serious: Yes (Other)
  Sender: FDA-Public Use
  Company Number: US-PFIZER INC-2013347355

PATIENT
  Age: 56 Year
  Sex: Female
  Weight: 88.89 kg

DRUGS (3)
  1. LYRICA [Suspect]
     Indication: FIBROMYALGIA
     Dosage: 75 MG, 2X/DAY
     Route: 048
     Dates: start: 201311
  2. LYRICA [Interacting]
     Indication: PAIN
  3. VALIUM [Interacting]
     Dosage: 10 MG, UNK
     Dates: start: 2013

REACTIONS (11)
  - Urinary tract infection [Unknown]
  - Cystitis [Unknown]
  - Drug interaction [Unknown]
  - Vision blurred [Unknown]
  - Visual impairment [Unknown]
  - Somnolence [Unknown]
  - Dizziness [Unknown]
  - Asthenopia [Unknown]
  - Drug ineffective [Unknown]
  - Sleep disorder [Unknown]
  - Therapeutic response unexpected [Unknown]
